FAERS Safety Report 4728630-8 (Version None)
Quarter: 2005Q3

REPORT INFORMATION
  Report Type: 
  Country: None (occurrence: None)
  Receive Date: 20050729
  Receipt Date: 20050630
  Transmission Date: 20060218
  Serious: Yes (Other)
  Sender: FDA-Public Use
  Company Number: 200511713EU

PATIENT
  Age: 91 Year
  Sex: Female

DRUGS (1)
  1. ENOXAPARIN SODIUM [Suspect]
     Indication: ANGINA UNSTABLE
     Route: 058

REACTIONS (5)
  - BREAST NECROSIS [None]
  - CONTUSION [None]
  - DYSPNOEA [None]
  - ECCHYMOSIS [None]
  - INDURATION [None]
